FAERS Safety Report 18463971 (Version 1)
Quarter: 2020Q4

REPORT INFORMATION
  Report Type: Spontaneous
  Country: FR (occurrence: FR)
  Receive Date: 20201104
  Receipt Date: 20201104
  Transmission Date: 20210114
  Serious: Yes (Hospitalization, Other)
  Sender: FDA-Public Use
  Company Number: FR-ASTRAZENECA-2020SF42732

PATIENT
  Age: 26317 Day
  Sex: Female

DRUGS (2)
  1. TAGRISSO [Suspect]
     Active Substance: OSIMERTINIB
     Dosage: 40.0MG UNKNOWN
     Route: 048
     Dates: start: 202006, end: 20201007
  2. TAGRISSO [Suspect]
     Active Substance: OSIMERTINIB
     Dosage: REDUCED DOSE (UNSPECIFIED DOSE) UNKNOWN
     Route: 048
     Dates: start: 20201026

REACTIONS (9)
  - Gamma-glutamyltransferase increased [Recovered/Resolved]
  - Nausea [Unknown]
  - Blood alkaline phosphatase increased [Recovered/Resolved]
  - Asthenia [Unknown]
  - Aspartate aminotransferase increased [Recovered/Resolved]
  - Blood lactate dehydrogenase increased [Recovered/Resolved]
  - Diarrhoea [Unknown]
  - Alanine aminotransferase increased [Recovered/Resolved]
  - Hepatocellular injury [Recovered/Resolved]

NARRATIVE: CASE EVENT DATE: 20201007
